FAERS Safety Report 7530725-0 (Version None)
Quarter: 2011Q2

REPORT INFORMATION
  Report Type: 
  Country: None (occurrence: None)
  Receive Date: 20110607
  Receipt Date: 20110405
  Transmission Date: 20111010
  Serious: Yes (Death)
  Sender: FDA-Public Use
  Company Number: FR-PFIZER INC-2011061308

PATIENT
  Sex: Female

DRUGS (1)
  1. ATORVASTATIN [Suspect]
     Indication: ACUTE CORONARY SYNDROME
     Dosage: UNK

REACTIONS (2)
  - LABELLED DRUG-DISEASE INTERACTION MEDICATION ERROR [None]
  - RHABDOMYOLYSIS [None]
